FAERS Safety Report 15542742 (Version 5)
Quarter: 2019Q2

REPORT INFORMATION
  Report Type: Spontaneous
  Country: US (occurrence: US)
  Receive Date: 20181023
  Receipt Date: 20190430
  Transmission Date: 20190711
  Serious: No
  Sender: FDA-Public Use
  Company Number: US-VERTEX PHARMACEUTICALS-2018-007669

PATIENT
  Age: 42 Year
  Sex: Female
  Weight: 59 kg

DRUGS (7)
  1. LEVAQUIN [Suspect]
     Active Substance: LEVOFLOXACIN
     Indication: HAEMOPTYSIS
     Dosage: UNK
     Route: 065
     Dates: start: 201810
  2. LEVAQUIN [Suspect]
     Active Substance: LEVOFLOXACIN
     Indication: MYCOBACTERIUM AVIUM COMPLEX INFECTION
  3. PULMOZYME [Concomitant]
     Active Substance: DORNASE ALFA
     Dosage: 1 AMPULE, QD
     Route: 055
  4. BACTRIM [Suspect]
     Active Substance: SULFAMETHOXAZOLE\TRIMETHOPRIM
     Indication: HAEMOPTYSIS
     Dosage: UNK
     Route: 065
     Dates: start: 201810
  5. ZOFRAN [Suspect]
     Active Substance: ONDANSETRON HYDROCHLORIDE
     Indication: MYCOBACTERIUM AVIUM COMPLEX INFECTION
     Route: 065
  6. SYMDEKO [Suspect]
     Active Substance: IVACAFTOR\TEZACAFTOR
     Indication: CYSTIC FIBROSIS
     Dosage: 100MG TEZACAFTOR/150MG IVACAFTOR AM; 150MG IVACAFTOR PM
     Route: 048
     Dates: start: 20181001, end: 20181030
  7. BACTRIM [Suspect]
     Active Substance: SULFAMETHOXAZOLE\TRIMETHOPRIM
     Indication: MYCOBACTERIUM AVIUM COMPLEX INFECTION

REACTIONS (10)
  - Abnormal faeces [Not Recovered/Not Resolved]
  - Lip swelling [Recovered/Resolved]
  - Headache [Recovered/Resolved]
  - Mycobacterium avium complex infection [Unknown]
  - Constipation [Recovered/Resolved]
  - Oral discomfort [Recovered/Resolved]
  - Lip exfoliation [Recovered/Resolved]
  - Nausea [Recovered/Resolved]
  - Trismus [Unknown]
  - Haemoptysis [Unknown]

NARRATIVE: CASE EVENT DATE: 2018
